FAERS Safety Report 9555191 (Version 1)
Quarter: 2013Q3

REPORT INFORMATION
  Report Type: Spontaneous
  Country: US (occurrence: None)
  Receive Date: 20130913
  Receipt Date: 20130913
  Transmission Date: 20140515
  Serious: Yes (Life-Threatening, Other)
  Sender: FDA-Public Use
  Company Number: 1450969

PATIENT
  Age: 67 Year
  Sex: Male

DRUGS (2)
  1. LEVOPHED [Suspect]
     Indication: DRUG THERAPY
     Route: 041
  2. PHENYLEPHRINE [Suspect]
     Indication: DRUG THERAPY
     Route: 041

REACTIONS (2)
  - Drug ineffective [None]
  - Blood pressure systolic decreased [None]
